FAERS Safety Report 26102483 (Version 1)
Quarter: 2025Q4

REPORT INFORMATION
  Report Type: Spontaneous
  Country: CN (occurrence: CN)
  Receive Date: 20251128
  Receipt Date: 20251128
  Transmission Date: 20260117
  Serious: Yes (Hospitalization, Other)
  Sender: PFIZER
  Company Number: CN-PFIZER INC-PV202500138105

PATIENT
  Age: 75 Year
  Sex: Female
  Weight: 56 kg

DRUGS (4)
  1. PACLITAXEL [Suspect]
     Active Substance: PACLITAXEL
     Indication: Cervix carcinoma
     Dosage: 240 MG, EVERY 3 WEEKS
     Route: 041
     Dates: start: 20251017, end: 20251107
  2. CARBOPLATIN [Suspect]
     Active Substance: CARBOPLATIN
     Indication: Cervix carcinoma
     Dosage: 480 MG, EVERY 3 WEEKS
     Route: 041
     Dates: start: 20251017, end: 20251107
  3. SODIUM CHLORIDE [Concomitant]
     Active Substance: SODIUM CHLORIDE
     Indication: Vehicle solution use
     Dosage: 500 ML, EVERY 3 WEEKS
     Route: 041
     Dates: start: 20251017, end: 20251107
  4. DEXTROSE [Concomitant]
     Active Substance: DEXTROSE MONOHYDRATE
     Indication: Vehicle solution use
     Dosage: 500 ML, EVERY 3 WEEKS
     Route: 041
     Dates: start: 20251017, end: 20251107

REACTIONS (5)
  - White blood cell count decreased [Recovering/Resolving]
  - Neutrophil count decreased [Recovering/Resolving]
  - Asthenia [Recovering/Resolving]
  - Chest discomfort [Recovering/Resolving]
  - Tachypnoea [Recovering/Resolving]

NARRATIVE: CASE EVENT DATE: 20251101
